FAERS Safety Report 9179292 (Version 1)
Quarter: 2013Q1

REPORT INFORMATION
  Report Type: Report from Study
  Country: CA (occurrence: CA)
  Receive Date: 20130321
  Receipt Date: 20130321
  Transmission Date: 20140127
  Serious: Yes (Other)
  Sender: FDA-Public Use
  Company Number: CA-ROCHE-1201632

PATIENT
  Sex: Female
  Weight: 73.5 kg

DRUGS (8)
  1. RITUXAN [Suspect]
     Indication: ANTI-NEUTROPHIL CYTOPLASMIC ANTIBODY POSITIVE VASCULITIS
     Route: 042
     Dates: start: 20120920
  2. RITUXAN [Suspect]
     Indication: OFF LABEL USE
  3. ALENDRONATE [Concomitant]
     Route: 065
  4. PREVACID [Concomitant]
  5. ATIVAN [Concomitant]
  6. DIPHENHYDRAMINE HCL [Concomitant]
     Indication: PREMEDICATION
     Route: 048
     Dates: start: 20120920
  7. ACETAMINOPHEN [Concomitant]
     Indication: PREMEDICATION
     Route: 048
     Dates: start: 20120920
  8. PREDNISONE [Concomitant]
     Indication: PREMEDICATION
     Route: 048
     Dates: start: 20120919

REACTIONS (3)
  - Breast cancer [Not Recovered/Not Resolved]
  - Bronchitis [Unknown]
  - Lung infection [Unknown]
